FAERS Safety Report 7788100-X (Version None)
Quarter: 2011Q3

REPORT INFORMATION
  Report Type: 
  Country: None (occurrence: None)
  Receive Date: 20110929
  Receipt Date: 20110929
  Transmission Date: 20111222
  Serious: Yes (Other)
  Sender: FDA-Public Use
  Company Number: None

PATIENT
  Age: 80 Year
  Sex: Female
  Weight: 78.4723 kg

DRUGS (4)
  1. QUINAPRIL [Suspect]
     Indication: RASH
     Dosage: 40 MG QD PO
     Route: 048
     Dates: start: 20100112, end: 20100207
  2. QUINAPRIL [Suspect]
     Indication: DYSPNOEA
     Dosage: 40 MG QD PO
     Route: 048
     Dates: start: 20100112, end: 20100207
  3. QUINAPRIL [Suspect]
     Indication: RASH
     Dosage: 40 MG QD PO
     Route: 048
     Dates: start: 20110116, end: 20110728
  4. QUINAPRIL [Suspect]
     Indication: DYSPNOEA
     Dosage: 40 MG QD PO
     Route: 048
     Dates: start: 20110116, end: 20110728

REACTIONS (2)
  - DYSPNOEA [None]
  - RASH [None]
